FAERS Safety Report 8235039-1 (Version None)
Quarter: 2012Q1

REPORT INFORMATION
  Report Type: 
  Country: None (occurrence: None)
  Receive Date: 20120326
  Receipt Date: 20120321
  Transmission Date: 20120608
  Serious: Yes (Hospitalization, Congenital Anomaly)
  Sender: FDA-Public Use
  Company Number: US-GLAXOSMITHKLINE-A0950666A

PATIENT
  Sex: Male

DRUGS (3)
  1. MULTI-VITAMINS [Concomitant]
     Route: 064
  2. PAXIL [Suspect]
     Indication: PRODUCT USED FOR UNKNOWN INDICATION
     Dosage: 40MG PER DAY
     Route: 064
     Dates: start: 19990101
  3. PAROXETINE HCL [Suspect]
     Indication: PRODUCT USED FOR UNKNOWN INDICATION
     Route: 064

REACTIONS (5)
  - FOETAL EXPOSURE DURING PREGNANCY [None]
  - TALIPES [None]
  - GASTROINTESTINAL DISORDER [None]
  - AUTOMATIC BLADDER [None]
  - TETHERED CORD SYNDROME [None]
